FAERS Safety Report 25893286 (Version 2)
Quarter: 2025Q4

REPORT INFORMATION
  Report Type: Spontaneous
  Country: EU (occurrence: EU)
  Receive Date: 20251008
  Receipt Date: 20251024
  Transmission Date: 20260118
  Serious: Yes (Death, Hospitalization)
  Sender: TEVA
  Company Number: EU-TEVA-VS-3378591

PATIENT
  Age: 83 Year
  Sex: Female

DRUGS (10)
  1. LOPERAMIDE [Suspect]
     Active Substance: LOPERAMIDE
     Indication: Diarrhoea
     Route: 065
     Dates: start: 202203
  2. IPILIMUMAB [Suspect]
     Active Substance: IPILIMUMAB
     Indication: Malignant melanoma stage IV
     Route: 065
     Dates: start: 202202
  3. METHYLPREDNISOLONE [Suspect]
     Active Substance: METHYLPREDNISOLONE
     Indication: Immune-mediated enterocolitis
     Route: 042
     Dates: start: 202203
  4. NIVOLUMAB [Suspect]
     Active Substance: NIVOLUMAB
     Indication: Malignant melanoma stage IV
     Route: 065
     Dates: start: 202202
  5. MYCOPHENOLATE MOFETIL [Suspect]
     Active Substance: MYCOPHENOLATE MOFETIL
     Indication: Immune-mediated enterocolitis
     Route: 065
     Dates: start: 202203
  6. INFLIXIMAB [Suspect]
     Active Substance: INFLIXIMAB
     Indication: Immune-mediated enterocolitis
     Dosage: SECOND IV INFUSION
     Route: 042
     Dates: start: 20220329
  7. INFLIXIMAB [Suspect]
     Active Substance: INFLIXIMAB
     Indication: Immune-mediated enterocolitis
     Route: 042
     Dates: start: 20220318
  8. TRAMETINIB [Suspect]
     Active Substance: TRAMETINIB
     Indication: Malignant melanoma stage IV
     Route: 065
  9. PREDNISOLONE [Suspect]
     Active Substance: PREDNISOLONE
     Indication: Immune-mediated enterocolitis
     Route: 048
     Dates: start: 2022
  10. PEMBROLIZUMAB [Suspect]
     Active Substance: PEMBROLIZUMAB
     Indication: Malignant melanoma stage IV
     Route: 065

REACTIONS (2)
  - Drug ineffective [Fatal]
  - Immune-mediated enterocolitis [Recovered/Resolved]

NARRATIVE: CASE EVENT DATE: 20220101
